FAERS Safety Report 7083461-1 (Version None)
Quarter: 2010Q4

REPORT INFORMATION
  Report Type: 
  Country: None (occurrence: None)
  Receive Date: 20101104
  Receipt Date: 20101028
  Transmission Date: 20110411
  Serious: Yes (Hospitalization)
  Sender: FDA-Public Use
  Company Number: B0681677A

PATIENT
  Sex: Male

DRUGS (8)
  1. AUGMENTIN '125' [Suspect]
     Indication: BRONCHITIS
     Route: 048
     Dates: start: 20090101, end: 20090101
  2. CRESTOR [Suspect]
     Dosage: 10MG PER DAY
     Route: 048
     Dates: end: 20090205
  3. PERINDOPRIL ERBUMINE [Suspect]
     Dosage: 2MG PER DAY
     Route: 048
     Dates: end: 20090205
  4. TENORMIN [Suspect]
     Dosage: 100MG TWICE PER DAY
     Route: 048
     Dates: end: 20090205
  5. LASIX [Suspect]
     Dosage: 40MG PER DAY
     Route: 048
     Dates: end: 20090205
  6. KARDEGIC [Suspect]
     Dosage: 75MG PER DAY
     Route: 048
     Dates: end: 20100205
  7. AMLODIPINE [Concomitant]
     Dosage: 5MG TWICE PER DAY
     Route: 065
  8. NITRODERM [Concomitant]
     Dosage: 1UNIT PER DAY
     Route: 065

REACTIONS (3)
  - CHOLESTASIS [None]
  - HEPATOCELLULAR INJURY [None]
  - JAUNDICE [None]
